FAERS Safety Report 4509032-6 (Version None)
Quarter: 2004Q4

REPORT INFORMATION
  Report Type: 
  Country: None (occurrence: None)
  Receive Date: 20041122
  Receipt Date: 20041122
  Transmission Date: 20050328
  Serious: Yes (Life-Threatening, Hospitalization, Disabling, Other)
  Sender: FDA-Public Use
  Company Number: None

PATIENT
  Age: 87 Year
  Sex: Female
  Weight: 48.9885 kg

DRUGS (6)
  1. ARTHROTEC [Suspect]
     Indication: ARTHRITIS
     Dosage: OPTIONAL 1-2.3 / A DAY
     Dates: start: 20030101
  2. FOSAMAX [Concomitant]
  3. TOPROL-XL [Concomitant]
  4. CALCIUM +D [Concomitant]
  5. DICLOFENAC SODIUM [Suspect]
  6. MISOPROSTOL [Suspect]

REACTIONS (5)
  - CARDIAC FAILURE CONGESTIVE [None]
  - DIZZINESS [None]
  - ELECTROCARDIOGRAM P WAVE ABNORMAL [None]
  - PULMONARY OEDEMA [None]
  - UNEVALUABLE EVENT [None]
